FAERS Safety Report 5393082-4 (Version None)
Quarter: 2007Q3

REPORT INFORMATION
  Report Type: 
  Country: None (occurrence: None)
  Receive Date: 20070719
  Receipt Date: 20070703
  Transmission Date: 20080115
  Serious: Yes (Hospitalization)
  Sender: FDA-Public Use
  Company Number: DSA_30226_2007

PATIENT
  Sex: Female

DRUGS (2)
  1. RENIVACE (RENIVACE) [Suspect]
     Dosage: (10 MG QD ORAL), (5 MG QD ORAL)
     Route: 048
     Dates: start: 20070501, end: 20070614
  2. RENIVACE (RENIVACE) [Suspect]
     Dosage: (10 MG QD ORAL), (5 MG QD ORAL)
     Route: 048
     Dates: start: 20070615

REACTIONS (3)
  - COUGH [None]
  - LIVER DISORDER [None]
  - NEPHROTIC SYNDROME [None]
